FAERS Safety Report 16639054 (Version 1)
Quarter: 2019Q3

REPORT INFORMATION
  Report Type: Spontaneous
  Country: BE (occurrence: BE)
  Receive Date: 20190726
  Receipt Date: 20190726
  Transmission Date: 20191004
  Serious: Yes (Other)
  Sender: FDA-Public Use
  Company Number: BE-PFM-2019-08445

PATIENT

DRUGS (2)
  1. VINORELBINE [Suspect]
     Active Substance: VINORELBINE TARTRATE
     Indication: EMBRYONAL RHABDOMYOSARCOMA
     Dosage: D1, D8, D15 (6 CYCLES FOR TOTAL PERIOD OF 6 MONTHS)
     Route: 042
  2. CYCLOPHOSPHAMIDE. [Suspect]
     Active Substance: CYCLOPHOSPHAMIDE
     Indication: EMBRYONAL RHABDOMYOSARCOMA
     Route: 048

REACTIONS (4)
  - Growth hormone deficiency [Unknown]
  - Adrenocorticotropic hormone deficiency [Unknown]
  - Product use in unapproved indication [Unknown]
  - Off label use [Unknown]
